FAERS Safety Report 11787244 (Version 2)
Quarter: 2015Q4

REPORT INFORMATION
  Report Type: Spontaneous
  Country: ES (occurrence: ES)
  Receive Date: 20151130
  Receipt Date: 20151130
  Transmission Date: 20160305
  Serious: Yes (Other)
  Sender: FDA-Public Use
  Company Number: ES-ACTAVIS-2015-18437

PATIENT
  Age: 17 Year
  Sex: Male
  Weight: 84 kg

DRUGS (9)
  1. VINCRISTINE [Concomitant]
     Active Substance: VINCRISTINE
     Indication: EWING^S SARCOMA
     Dosage: 2 MG, DAILY DAY 1 OVER 15 MINUTES
     Route: 042
  2. DOXORUBICIN [Concomitant]
     Active Substance: DOXORUBICIN
     Indication: EWING^S SARCOMA
     Dosage: 40 MG, DAILY OVER 4 H, DAYS 1-3
     Route: 042
  3. HYDROCORTISONE (UNKNOWN) [Suspect]
     Active Substance: HYDROCORTISONE
     Indication: HYPERSENSITIVITY
     Dosage: 100 MG, Q6H
     Route: 042
  4. ETOPOSIDE (UNKNOWN) [Suspect]
     Active Substance: ETOPOSIDE
     Indication: EWING^S SARCOMA
     Dosage: 300 MG, DAILY DAYS 1-3 OVER 3H
     Route: 042
  5. IFOSFAMIDE. [Concomitant]
     Active Substance: IFOSFAMIDE
     Indication: EWING^S SARCOMA
     Dosage: 6000 MG, DAILY OVER 1 H, DAYS 1-3
     Route: 042
  6. MESNA. [Concomitant]
     Active Substance: MESNA
     Indication: EWING^S SARCOMA
     Dosage: 7200 MG, DAILY INITIATE 1H BEFORE IFOSFAMIDE, DAYS 1-4
     Route: 042
  7. ALLOPURINOL. [Concomitant]
     Active Substance: ALLOPURINOL
     Indication: SUPPORTIVE CARE
     Dosage: 300 MG, DAILY
     Route: 065
  8. GRANISETRON [Concomitant]
     Active Substance: GRANISETRON
     Indication: SUPPORTIVE CARE
     Dosage: 1 MG EVERY 12 HOURS
     Route: 065
  9. DIPHENHYDRAMINE. [Concomitant]
     Active Substance: DIPHENHYDRAMINE
     Indication: HYPERSENSITIVITY
     Dosage: 50 MG, Q6H
     Route: 042

REACTIONS (3)
  - Hyperglycaemia [Unknown]
  - Urticaria [Recovered/Resolved]
  - Fluid retention [Recovered/Resolved]
